FAERS Safety Report 23131376 (Version 3)
Quarter: 2024Q1

REPORT INFORMATION
  Report Type: Spontaneous
  Country: IT (occurrence: IT)
  Receive Date: 20231031
  Receipt Date: 20240220
  Transmission Date: 20240409
  Serious: Yes (Hospitalization)
  Sender: FDA-Public Use
  Company Number: IT-ROCHE-2913831

PATIENT
  Age: 69 Year
  Sex: Female
  Weight: 70 kg

DRUGS (47)
  1. CYCLOPHOSPHAMIDE [Suspect]
     Active Substance: CYCLOPHOSPHAMIDE
     Indication: Diffuse large B-cell lymphoma
     Dosage: 750 MG/M2, TIW ON 01/SEP/2021, SHE RECEIVED MOST RECENT DOSE (750
     Route: 042
     Dates: start: 20210503
  2. CYCLOPHOSPHAMIDE [Suspect]
     Active Substance: CYCLOPHOSPHAMIDE
     Indication: Non-Hodgkin^s lymphoma refractory
  3. DOXORUBICIN [Suspect]
     Active Substance: DOXORUBICIN
     Indication: Non-Hodgkin^s lymphoma refractory
     Dosage: 50 MG/M2, TIW ON 01/SEP/2021, SHE RECEIVED MOST RECENT DOSE (50 MG/M2 AND TOTAL VOLUME: 25 ML) OF DO
     Route: 042
     Dates: start: 20210503
  4. DOXORUBICIN [Suspect]
     Active Substance: DOXORUBICIN
     Indication: Diffuse large B-cell lymphoma
  5. GLOFITAMAB [Suspect]
     Active Substance: GLOFITAMAB
     Indication: Diffuse large B-cell lymphoma stage IV
     Dosage: DOSE LAST STUDY DRUG ADMIN PRIOR AE/SAE 30 MGTOTAL VOLUME PRIOR AE/SAE 50 MLSTART DATE OF MOST RECEN
     Route: 042
     Dates: start: 20210603
  6. METHYLPREDNISOLONE [Suspect]
     Active Substance: METHYLPREDNISOLONE
     Indication: Diffuse large B-cell lymphoma stage IV
     Dosage: 80 MG, QD (/ON 21/JUL/2021, SHE RECEIVED MOST RECENT DOSE (80 MG) OF METHYLPREDNISOLONE PRIOR TO AE
     Route: 048
     Dates: start: 20210503
  7. METHYLPREDNISOLONE [Suspect]
     Active Substance: METHYLPREDNISOLONE
     Indication: Diffuse large B-cell lymphoma
  8. METHYLPREDNISOLONE [Suspect]
     Active Substance: METHYLPREDNISOLONE
     Indication: Non-Hodgkin^s lymphoma refractory
  9. PREDNISONE [Suspect]
     Active Substance: PREDNISONE
     Indication: Diffuse large B-cell lymphoma
     Dosage: 100 MG ON 25/JUL/2021, SHE RECEIVED MOST RECENT DOSE (100 MG AT 9:00 AM) OF PREDNISONE PRIOR TO AE A
     Route: 048
     Dates: start: 20210504
  10. PREDNISONE [Suspect]
     Active Substance: PREDNISONE
     Indication: Non-Hodgkin^s lymphoma refractory
  11. RITUXIMAB [Suspect]
     Active Substance: RITUXIMAB
     Indication: Diffuse large B-cell lymphoma
     Dosage: ON 01/SEP/2021, SHE RECEIVED MOST RECENT DOSE (375 MG/M2, TOTAL VOLUME :250 ML) OF RITUXIMAB PRIOR T
     Route: 041
     Dates: start: 20210503
  12. RITUXIMAB [Suspect]
     Active Substance: RITUXIMAB
     Indication: Non-Hodgkin^s lymphoma refractory
  13. VINCRISTINE [Suspect]
     Active Substance: VINCRISTINE
     Indication: Non-Hodgkin^s lymphoma refractory
     Dosage: 1.4 MG/M2, TIW ON 01/SEP/2021, SHE RECEIVED MOST RECENT DOSE (1.4 MG/M2 AND 1 ML AT 2:18 PM) OF VINC
     Route: 042
     Dates: start: 20210503
  14. VINCRISTINE [Suspect]
     Active Substance: VINCRISTINE
     Indication: Diffuse large B-cell lymphoma
  15. ALLOPURINOL [Concomitant]
     Active Substance: ALLOPURINOL
     Indication: Prophylaxis
     Dosage: UNK
     Route: 065
     Dates: start: 20210428
  16. BACTRIM [Concomitant]
     Active Substance: SULFAMETHOXAZOLE\TRIMETHOPRIM
     Indication: Pneumocystis jirovecii infection
     Dosage: UNK
     Route: 065
     Dates: start: 20210430
  17. CHLORPHENIRAMINE MALEATE [Concomitant]
     Active Substance: CHLORPHENIRAMINE MALEATE
     Indication: Product used for unknown indication
     Dosage: 10 MG, QD
     Route: 042
     Dates: start: 20210818, end: 20210818
  18. CHLORPHENIRAMINE MALEATE [Concomitant]
     Active Substance: CHLORPHENIRAMINE MALEATE
     Dosage: 10 MG, QD
     Route: 042
     Dates: start: 20210901, end: 20210901
  19. CHLORPHENIRAMINE MALEATE [Concomitant]
     Active Substance: CHLORPHENIRAMINE MALEATE
     Dosage: 10 MG
     Route: 042
     Dates: start: 20210908, end: 20210908
  20. CLOREXIDINA [Concomitant]
     Indication: Dyspepsia
     Dosage: UNK
     Route: 065
     Dates: start: 20210525
  21. CLOREXIDINA [Concomitant]
     Indication: Odynophagia
     Route: 065
     Dates: start: 20210525
  22. CLOREXIDINA [Concomitant]
     Route: 065
     Dates: start: 20210525
  23. CLOREXIDINA [Concomitant]
     Route: 065
     Dates: start: 20210525
  24. CLOREXIDINA [Concomitant]
     Route: 065
     Dates: start: 20210525
  25. CLOREXIDINA [Concomitant]
     Route: 065
     Dates: start: 20210525
  26. CLOREXIDINA [Concomitant]
     Route: 065
     Dates: start: 20210525
  27. CYMBALTA [Concomitant]
     Active Substance: DULOXETINE HYDROCHLORIDE
     Indication: Depression
     Dosage: UNK
     Route: 065
  28. CYMBALTA [Concomitant]
     Active Substance: DULOXETINE HYDROCHLORIDE
     Indication: Depression
  29. Daflon [Concomitant]
     Indication: Oedema peripheral
     Dosage: UNK
     Route: 065
     Dates: start: 20210603
  30. DEXAMETHASONE [Concomitant]
     Active Substance: DEXAMETHASONE
     Indication: Product used for unknown indication
     Dosage: 20 MG
     Route: 042
     Dates: start: 20210908, end: 20210908
  31. DEXAMETHASONE [Concomitant]
     Active Substance: DEXAMETHASONE
     Dosage: 80 MG, QD
     Route: 042
     Dates: start: 20210818, end: 20210818
  32. ESOMEPRAZOLE [Concomitant]
     Active Substance: ESOMEPRAZOLE
     Indication: Gastrointestinal disorder prophylaxis
     Dosage: UNK
     Route: 065
  33. GRANULOCYTE COLONY-STIMULATING FACTOR NOS [Concomitant]
     Active Substance: GRANULOCYTE COLONY-STIMULATING FACTOR NOS
     Indication: Product used for unknown indication
     Dosage: UNK
     Route: 065
     Dates: start: 20210903, end: 20210905
  34. ENOXAPARIN SODIUM [Concomitant]
     Active Substance: ENOXAPARIN SODIUM
     Indication: Venous thrombosis
     Dosage: UNK
     Route: 065
     Dates: start: 20210630
  35. Levopraid [Concomitant]
     Indication: Nausea
     Dosage: UNK
     Route: 065
     Dates: start: 20210727
  36. LOBIDIUR [Concomitant]
     Active Substance: HYDROCHLOROTHIAZIDE\NEBIVOLOL HYDROCHLORIDE
     Indication: Hypertension
     Dosage: UNK
     Route: 065
  37. METHYLPREDNISOLONE [Concomitant]
     Active Substance: METHYLPREDNISOLONE
     Indication: Product used for unknown indication
     Dosage: 80 MG, QD
     Route: 042
     Dates: start: 20210901, end: 20210901
  38. MOVICOL [Concomitant]
     Active Substance: POLYETHYLENE GLYCOL 3350\POTASSIUM CHLORIDE\SODIUM BICARBONATE\SODIUM CHLORIDE
     Indication: Constipation
     Dosage: UNK
     Route: 065
     Dates: start: 20211027
  39. MYCOSTATIN [Concomitant]
     Active Substance: NYSTATIN
     Indication: Prophylaxis
     Dosage: UNK
     Route: 065
     Dates: start: 20210430
  40. OMEPRAZOLE [Concomitant]
     Active Substance: OMEPRAZOLE
     Indication: Gastritis
     Dosage: UNK
     Route: 065
     Dates: start: 20210428
  41. ACETAMINOPHEN [Concomitant]
     Active Substance: ACETAMINOPHEN
     Dosage: 1000 MG
     Route: 042
     Dates: start: 20210901, end: 20210901
  42. ACETAMINOPHEN [Concomitant]
     Active Substance: ACETAMINOPHEN
     Dosage: 1000 MG
     Route: 048
     Dates: start: 20210908, end: 20210908
  43. ACETAMINOPHEN [Concomitant]
     Active Substance: ACETAMINOPHEN
     Indication: Product used for unknown indication
     Dosage: 1000 MG, QD
     Route: 048
     Dates: start: 20210818, end: 20210818
  44. RETACRIT [Concomitant]
     Active Substance: EPOETIN ALFA-EPBX
     Indication: Haemoglobin decreased
     Dosage: UNK
     Route: 065
     Dates: start: 20210608
  45. SIMVASTATIN [Concomitant]
     Active Substance: SIMVASTATIN
     Indication: Dyslipidaemia
     Dosage: UNK
     Route: 065
  46. TRAMADOL [Concomitant]
     Active Substance: TRAMADOL\TRAMADOL HYDROCHLORIDE
     Indication: Pain in extremity
     Dosage: UNK
     Route: 065
     Dates: start: 20210630
  47. FILGRASTIM [Concomitant]
     Active Substance: FILGRASTIM
     Indication: Neutropenia
     Dosage: UNK
     Route: 065
     Dates: start: 20210813, end: 20210816

REACTIONS (1)
  - Febrile neutropenia [Recovered/Resolved]

NARRATIVE: CASE EVENT DATE: 20210911
